FAERS Safety Report 18775860 (Version 2)
Quarter: 2021Q1

REPORT INFORMATION
  Report Type: Spontaneous
  Country: CA (occurrence: CA)
  Receive Date: 20210122
  Receipt Date: 20210127
  Transmission Date: 20210419
  Serious: Yes (Other)
  Sender: FDA-Public Use
  Company Number: CA-PFIZER INC-2020122372

PATIENT
  Age: 46 Year
  Sex: Female
  Weight: 68 kg

DRUGS (19)
  1. INFLECTRA [Suspect]
     Active Substance: INFLIXIMAB-DYYB
     Indication: COLITIS ULCERATIVE
     Dosage: 1 DF (HOSPITAL START )
     Route: 042
     Dates: start: 202002, end: 202002
  2. INFLECTRA [Suspect]
     Active Substance: INFLIXIMAB-DYYB
     Dosage: 1 DF (HOSPITAL START )
     Route: 042
     Dates: start: 202003, end: 202003
  3. INFLECTRA [Suspect]
     Active Substance: INFLIXIMAB-DYYB
     Dosage: 5MG/KG EVERY 4 WEEKS
     Route: 042
     Dates: start: 20210118
  4. ASACOL [Concomitant]
     Active Substance: MESALAMINE
     Dosage: 800 MG, UNK
     Route: 065
  5. INFLECTRA [Suspect]
     Active Substance: INFLIXIMAB-DYYB
     Dosage: 5 MG/KG, AT Q 6 WEEKS THEN EVERY 8 WEEKS
     Route: 042
     Dates: start: 20200603
  6. INFLECTRA [Suspect]
     Active Substance: INFLIXIMAB-DYYB
     Dosage: 5MG/KG EVERY 4 WEEKS
     Route: 042
     Dates: start: 20201119
  7. PREDNISONE. [Concomitant]
     Active Substance: PREDNISONE
     Dosage: 1 DF
     Route: 065
  8. INFLECTRA [Suspect]
     Active Substance: INFLIXIMAB-DYYB
     Dosage: 5 MG/KG, AT Q 6 WEEKS THEN EVERY 8 WEEKS
     Route: 042
     Dates: start: 20200309
  9. LORAZEPAM. [Suspect]
     Active Substance: LORAZEPAM
     Dosage: 1 DF
     Route: 065
  10. CORTISONE [Concomitant]
     Active Substance: CORTISONE
     Dosage: 30 MG, 1X/DAY (DIE) (INCREASED)
     Route: 065
  11. TRAZODONE [Concomitant]
     Active Substance: TRAZODONE HYDROCHLORIDE
     Dosage: 1 DF
     Route: 065
  12. INFLECTRA [Suspect]
     Active Substance: INFLIXIMAB-DYYB
     Dosage: 5 MG/KG, AT Q 6 WEEKS THEN EVERY 8 WEEKS
     Route: 042
     Dates: start: 20200924
  13. INFLECTRA [Suspect]
     Active Substance: INFLIXIMAB-DYYB
     Dosage: 5MG/KG EVERY 4 WEEKS
     Route: 042
     Dates: start: 20201221
  14. QUETIAPINE XR [Concomitant]
     Active Substance: QUETIAPINE
     Dosage: 1 DF
     Route: 065
  15. INFLECTRA [Suspect]
     Active Substance: INFLIXIMAB-DYYB
     Dosage: 5 MG/KG, AT Q 6 WEEKS THEN EVERY 8 WEEKS
     Route: 042
     Dates: start: 20200408
  16. JAMP?PANTOPRAZOLE [Concomitant]
     Dosage: 1 DF
     Route: 065
  17. SYNTHROID [Concomitant]
     Active Substance: LEVOTHYROXINE SODIUM
     Dosage: 1 DF
     Route: 065
  18. INFLECTRA [Suspect]
     Active Substance: INFLIXIMAB-DYYB
     Dosage: 5 MG/KG, AT Q 6 WEEKS THEN EVERY 8 WEEKS
     Route: 042
     Dates: start: 20200728
  19. ARIPIPRAZOLE. [Concomitant]
     Active Substance: ARIPIPRAZOLE
     Dosage: 1 DF
     Route: 065

REACTIONS (10)
  - Abdominal distension [Unknown]
  - Abdominal tenderness [Unknown]
  - Fatigue [Unknown]
  - Blood pressure diastolic increased [Unknown]
  - Off label use [Unknown]
  - Condition aggravated [Not Recovered/Not Resolved]
  - Pyrexia [Unknown]
  - Loss of consciousness [Unknown]
  - Drug ineffective [Not Recovered/Not Resolved]
  - Illness [Unknown]

NARRATIVE: CASE EVENT DATE: 2020
